FAERS Safety Report 24240014 (Version 2)
Quarter: 2024Q3

REPORT INFORMATION
  Report Type: Spontaneous
  Country: US (occurrence: US)
  Receive Date: 20240822
  Receipt Date: 20240919
  Transmission Date: 20241017
  Serious: No
  Sender: BRISTOL MYERS SQUIBB
  Company Number: US-BRISTOL-MYERS SQUIBB COMPANY-2024-133235

PATIENT
  Age: 68 Year
  Sex: Female
  Weight: 138.35 kg

DRUGS (1)
  1. POMALYST [Suspect]
     Active Substance: POMALIDOMIDE
     Indication: Plasma cell myeloma
     Route: 048

REACTIONS (6)
  - Skin disorder [Unknown]
  - Swelling [Unknown]
  - Pruritus [Unknown]
  - Muscle spasms [Recovering/Resolving]
  - Rash [Recovering/Resolving]
  - Fatigue [Recovering/Resolving]
